FAERS Safety Report 12763374 (Version 1)
Quarter: 2016Q3

REPORT INFORMATION
  Report Type: Spontaneous
  Country: CA (occurrence: US)
  Receive Date: 20160919
  Receipt Date: 20160919
  Transmission Date: 20161109
  Serious: Yes (Life-Threatening, Hospitalization, Disabling, Other)
  Sender: FDA-Public Use
  Company Number: None

PATIENT
  Age: 97 Year
  Sex: Female
  Weight: 49.5 kg

DRUGS (21)
  1. APO-CLINDAMYCIN HCL [Suspect]
     Active Substance: CLINDAMYCIN HYDROCHLORIDE
     Indication: LOCALISED INFECTION
     Route: 048
     Dates: start: 20160822, end: 20160827
  2. ADVAIR HFA [Concomitant]
     Active Substance: FLUTICASONE PROPIONATE\SALMETEROL XINAFOATE
  3. DOZAZOSIN [Concomitant]
  4. VITAMIN A [Concomitant]
     Active Substance: VITAMIN A
  5. KRILL [Concomitant]
  6. HYDROXYUREA. [Concomitant]
     Active Substance: HYDROXYUREA
  7. AMLODIPINE MIDAMOR [Concomitant]
  8. SENOKOT [Concomitant]
     Active Substance: SENNOSIDES
  9. LIQUID CALCIUM CITRATE [Concomitant]
  10. METOPROLOL. [Concomitant]
     Active Substance: METOPROLOL
  11. FUROSEMIDE. [Concomitant]
     Active Substance: FUROSEMIDE
  12. VITAMIN E [Concomitant]
     Active Substance: .ALPHA.-TOCOPHEROL
  13. NITRO PATCH [Concomitant]
     Active Substance: NITROGLYCERIN
  14. COLACE [Concomitant]
     Active Substance: DOCUSATE SODIUM
  15. B-100 COMPLEX [Concomitant]
     Active Substance: DEXPANTHENOL\NIACINAMIDE\PYRIDOXINE HYDROCHLORIDE\RIBOFLAVIN 5^-PHOSPHATE SODIUM\THIAMINE HYDROCHLORIDE
  16. BILLBERRY [Concomitant]
  17. AMLODIPINE [Concomitant]
     Active Substance: AMLODIPINE BESYLATE
  18. ACTONEL [Concomitant]
     Active Substance: RISEDRONATE SODIUM
  19. ASA [Concomitant]
     Active Substance: ASPIRIN
  20. LIQUID GLUCOSAMINE SHELLFISH FREE [Concomitant]
  21. SIICEA 6X (SILICON DIOXIDE) [Concomitant]

REACTIONS (4)
  - Seizure [None]
  - Angina pectoris [None]
  - Myocardial infarction [None]
  - Gastrointestinal disorder [None]

NARRATIVE: CASE EVENT DATE: 20160827
